FAERS Safety Report 16022583 (Version 1)
Quarter: 2019Q1

REPORT INFORMATION
  Report Type: Spontaneous
  Country: ES (occurrence: ES)
  Receive Date: 20190301
  Receipt Date: 20190301
  Transmission Date: 20190418
  Serious: Yes (Other)
  Sender: FDA-Public Use
  Company Number: ES-AMGEN-ESPSP2019029963

PATIENT
  Age: 54 Year

DRUGS (8)
  1. PHENOBARBITAL. [Concomitant]
     Active Substance: PHENOBARBITAL
     Dosage: UNK
  2. BILASTINE [Concomitant]
     Active Substance: BILASTINE
     Dosage: UNK
  3. FORMODUAL NEXTHALER [Concomitant]
     Dosage: 200 MUG, UNK
  4. VENLAFAXINE [Concomitant]
     Active Substance: VENLAFAXINE HYDROCHLORIDE
     Dosage: UNK
  5. TRILEPTAL [Concomitant]
     Active Substance: OXCARBAZEPINE
     Dosage: 300 MG, UNK
  6. RAMIPRIL + HIDROCLOROTIAZIDA [Concomitant]
     Active Substance: HYDROCHLOROTHIAZIDE\RAMIPRIL
     Dosage: 5 MG/25MG TABLETS
  7. PROLIA [Suspect]
     Active Substance: DENOSUMAB
     Indication: OSTEOPOROSIS
     Dosage: UNK
     Route: 030
     Dates: start: 20170101, end: 20190101
  8. OSVICAL D [Concomitant]
     Dosage: UNK

REACTIONS (1)
  - Osteonecrosis [Unknown]

NARRATIVE: CASE EVENT DATE: 20170101
